FAERS Safety Report 11003564 (Version 1)
Quarter: 2015Q2

REPORT INFORMATION
  Report Type: Spontaneous
  Country: US (occurrence: None)
  Receive Date: 20150408
  Receipt Date: 20150408
  Transmission Date: 20150821
  Serious: Yes (Hospitalization)
  Sender: FDA-Public Use
  Company Number: None

PATIENT
  Age: 26 Year
  Sex: Female
  Weight: 68.04 kg

DRUGS (6)
  1. XANAX [Concomitant]
     Active Substance: ALPRAZOLAM
  2. CVS WOMEN^S DAILY GUMMIES COMPLETE MULTIVITAMIN [Concomitant]
  3. DULOXETINE HYDROCHLORIDE. [Suspect]
     Active Substance: DULOXETINE HYDROCHLORIDE
     Indication: GENERALISED ANXIETY DISORDER
     Dosage: DR 2 PILLS
     Route: 048
     Dates: start: 20150331, end: 20150331
  4. ALTAVERA [Concomitant]
     Active Substance: ETHINYL ESTRADIOL\LEVONORGESTREL
  5. NATURE^S BOUNTY PROBIOTIC [Concomitant]
  6. WELL BUTRIN XL [Concomitant]

REACTIONS (12)
  - Fatigue [None]
  - Photopsia [None]
  - Dyspnoea [None]
  - Depressed mood [None]
  - Vision blurred [None]
  - Vomiting [None]
  - Confusional state [None]
  - Self injurious behaviour [None]
  - Feeling abnormal [None]
  - Hyperhidrosis [None]
  - Paranoia [None]
  - Feeling hot [None]

NARRATIVE: CASE EVENT DATE: 20150331
